FAERS Safety Report 25810368 (Version 1)
Quarter: 2025Q3

REPORT INFORMATION
  Report Type: Report from Study
  Country: CA (occurrence: CA)
  Receive Date: 20250917
  Receipt Date: 20250917
  Transmission Date: 20251020
  Serious: Yes (Hospitalization, Other)
  Sender: AUROBINDO
  Company Number: CA-AUROBINDO-AUR-APL-2024-018206

PATIENT
  Age: 4 Month
  Sex: Female
  Weight: 5 kg

DRUGS (5)
  1. TADALAFIL [Suspect]
     Active Substance: TADALAFIL
     Indication: Pulmonary arterial hypertension
     Route: 065
  2. TADALAFIL [Suspect]
     Active Substance: TADALAFIL
     Indication: Heart disease congenital
  3. BOSENTAN [Suspect]
     Active Substance: BOSENTAN
     Indication: Pulmonary arterial hypertension
     Route: 065
  4. BOSENTAN [Suspect]
     Active Substance: BOSENTAN
     Indication: Heart disease congenital
  5. BOSENTAN [Suspect]
     Active Substance: BOSENTAN
     Indication: Atrial septal defect

REACTIONS (6)
  - Condition aggravated [Unknown]
  - Device failure [Unknown]
  - Iliac artery occlusion [Unknown]
  - Drug ineffective [Unknown]
  - Product ineffective [Unknown]
  - Off label use [Unknown]
